FAERS Safety Report 10206062 (Version 1)
Quarter: 2014Q2

REPORT INFORMATION
  Report Type: Spontaneous
  Country: US (occurrence: None)
  Receive Date: 20140528
  Receipt Date: 20140528
  Transmission Date: 20141212
  Serious: No
  Sender: FDA-Public Use
  Company Number: None

PATIENT
  Age: 51 Year
  Sex: Male

DRUGS (1)
  1. AUGMENTIN [Suspect]
     Indication: EAR INFECTION
     Dates: start: 20120814, end: 20120824

REACTIONS (6)
  - Drug-induced liver injury [None]
  - Chromaturia [None]
  - Jaundice [None]
  - Blood bilirubin increased [None]
  - Alanine aminotransferase increased [None]
  - Blood alkaline phosphatase increased [None]
